FAERS Safety Report 7075105-X (Version None)
Quarter: 2010Q4

REPORT INFORMATION
  Report Type: 
  Country: None (occurrence: None)
  Receive Date: 20101029
  Receipt Date: 20100405
  Transmission Date: 20110411
  Serious: No
  Sender: FDA-Public Use
  Company Number: US-WYE-H14522510

PATIENT
  Sex: Male

DRUGS (2)
  1. ALAVERT [Suspect]
  2. CLARITIN [Suspect]

REACTIONS (2)
  - OVERDOSE [None]
  - SOMNOLENCE [None]
